FAERS Safety Report 25907772 (Version 1)
Quarter: 2025Q4

REPORT INFORMATION
  Report Type: Spontaneous
  Country: SA (occurrence: SA)
  Receive Date: 20251010
  Receipt Date: 20251010
  Transmission Date: 20260117
  Serious: Yes (Other)
  Sender: RECORDATI
  Company Number: SA-ORPHANEU-2025007086

PATIENT
  Age: 20 Year
  Sex: Male

DRUGS (4)
  1. BETAINE [Suspect]
     Active Substance: BETAINE
     Indication: Homocystinuria
     Dosage: UNK
  2. BETAINE [Suspect]
     Active Substance: BETAINE
     Indication: Anaemia vitamin B12 deficiency
  3. VITAMIN B12 [Suspect]
     Active Substance: CYANOCOBALAMIN
     Indication: Homocystinuria
     Dosage: UNK
  4. VITAMIN B12 [Suspect]
     Active Substance: CYANOCOBALAMIN
     Indication: Anaemia vitamin B12 deficiency

REACTIONS (1)
  - End stage renal disease [Unknown]
